FAERS Safety Report 8788836 (Version 2)
Quarter: 2012Q4

REPORT INFORMATION
  Report Type: 
  Country: US (occurrence: US)
  Receive Date: 20120917
  Receipt Date: 20120918
  Transmission Date: 20130627
  Serious: No
  Sender: FDA-Public Use
  Company Number: US-PFIZER INC-2012227950

PATIENT
  Age: 35 Year
  Sex: Male
  Weight: 131 kg

DRUGS (4)
  1. PRISTIQ [Suspect]
     Indication: DEPRESSION
     Dosage: 100 mg, daiy
     Dates: start: 201206, end: 201208
  2. PRISTIQ [Suspect]
     Indication: ANXIETY
     Dosage: 100 mg, daiy
     Dates: start: 201208, end: 201208
  3. ZYPREXA [Suspect]
     Indication: DEPRESSION
     Dosage: UNK
     Dates: start: 201206, end: 201208
  4. ZYPREXA [Suspect]
     Indication: ANXIETY

REACTIONS (6)
  - Off label use [Not Recovered/Not Resolved]
  - Abdominal pain lower [Not Recovered/Not Resolved]
  - Bladder pain [Not Recovered/Not Resolved]
  - Pain [Not Recovered/Not Resolved]
  - Myalgia [Not Recovered/Not Resolved]
  - Pollakiuria [Not Recovered/Not Resolved]
